FAERS Safety Report 9879463 (Version 1)
Quarter: 2014Q1

REPORT INFORMATION
  Report Type: Spontaneous
  Country: CA (occurrence: CA)
  Receive Date: 20140206
  Receipt Date: 20140206
  Transmission Date: 20141002
  Serious: Yes (Other)
  Sender: FDA-Public Use
  Company Number: CHPA2014CA002034

PATIENT
  Age: 93 Year
  Sex: Female

DRUGS (1)
  1. KERI UNKNOWN [Suspect]

REACTIONS (1)
  - Aneurysm [Unknown]
